FAERS Safety Report 5355462-2 (Version None)
Quarter: 2007Q2

REPORT INFORMATION
  Report Type: 
  Country: None (occurrence: None)
  Receive Date: 20070530
  Receipt Date: 20061204
  Transmission Date: 20071010
  Serious: Yes (Hospitalization)
  Sender: FDA-Public Use
  Company Number: US200609002073

PATIENT
  Age: 33 Year
  Sex: Female
  Weight: 86.2 kg

DRUGS (8)
  1. ZYPREXA [Suspect]
     Dosage: 20 MG
  2. ARIPIPRAZOLE [Concomitant]
  3. QUETIAPINE FUMARATE [Concomitant]
  4. CHLORPROMAZINE [Concomitant]
  5. FLUVOXAMINE MALEATE [Concomitant]
  6. ATIVAN [Concomitant]
  7. ATENOLOL [Concomitant]
  8. ESTROGENS CONJUGATED W/PROGESTERONE (ESTROGENS CONJUGATED, PROGESTERON [Concomitant]

REACTIONS (4)
  - DIABETES MELLITUS [None]
  - HYPERINSULINISM [None]
  - POLYDIPSIA [None]
  - VISION BLURRED [None]
